FAERS Safety Report 6971332-8 (Version None)
Quarter: 2010Q3

REPORT INFORMATION
  Report Type: 
  Country: None (occurrence: None)
  Receive Date: 20100903
  Receipt Date: 20100824
  Transmission Date: 20110219
  Serious: No
  Sender: FDA-Public Use
  Company Number: US-1183180

PATIENT
  Sex: Female

DRUGS (1)
  1. TRAVATAN [Suspect]
     Dosage: OPHTHALMIC
     Route: 047
     Dates: start: 20100301

REACTIONS (4)
  - ENTROPION [None]
  - EYE IRRITATION [None]
  - GROWTH OF EYELASHES [None]
  - THERAPEUTIC RESPONSE DECREASED [None]
